FAERS Safety Report 10355825 (Version 2)
Quarter: 2014Q3

REPORT INFORMATION
  Report Type: Spontaneous
  Country: GB (occurrence: GB)
  Receive Date: 20140731
  Receipt Date: 20140811
  Transmission Date: 20150326
  Serious: Yes (Other)
  Sender: FDA-Public Use
  Company Number: GB-ABBVIE-14K-167-1264765-00

PATIENT
  Sex: Female

DRUGS (5)
  1. HUMIRA [Suspect]
     Active Substance: ADALIMUMAB
     Indication: PRODUCT USED FOR UNKNOWN INDICATION
     Dates: start: 20140619, end: 20140619
  2. HUMIRA [Suspect]
     Active Substance: ADALIMUMAB
     Dates: start: 20140703, end: 20140703
  3. HUMIRA [Suspect]
     Active Substance: ADALIMUMAB
     Dates: start: 20140720
  4. HUMIRA [Suspect]
     Active Substance: ADALIMUMAB
     Dates: start: 20140717
  5. HUMIRA [Suspect]
     Active Substance: ADALIMUMAB
     Dates: start: 20140719

REACTIONS (4)
  - Neutropenia [Recovering/Resolving]
  - Confusional state [Recovering/Resolving]
  - Inappropriate schedule of drug administration [Recovering/Resolving]
  - Drug administered at inappropriate site [Not Recovered/Not Resolved]

NARRATIVE: CASE EVENT DATE: 20140719
